FAERS Safety Report 9697503 (Version 1)
Quarter: 2013Q4

REPORT INFORMATION
  Report Type: Spontaneous
  Country: CA (occurrence: CA)
  Receive Date: 20131120
  Receipt Date: 20131120
  Transmission Date: 20140711
  Serious: Yes (Other)
  Sender: FDA-Public Use
  Company Number: CA-ROCHE-1305299

PATIENT
  Age: 73 Year
  Sex: Female

DRUGS (6)
  1. RITUXAN [Suspect]
     Indication: VASCULITIS
     Route: 042
  2. PREDNISONE [Suspect]
     Indication: PRODUCT USED FOR UNKNOWN INDICATION
     Route: 048
  3. NORVASC [Concomitant]
  4. ACETYLSALICYLIC ACID [Concomitant]
  5. IRBESARTAN [Concomitant]
  6. OMEPRAZOLE [Concomitant]

REACTIONS (4)
  - Hallucination [Recovering/Resolving]
  - Swelling face [Unknown]
  - Alopecia [Unknown]
  - Off label use [Unknown]
